FAERS Safety Report 9399305 (Version 3)
Quarter: 2014Q2

REPORT INFORMATION
  Report Type: Spontaneous
  Country: US (occurrence: US)
  Receive Date: 20130715
  Receipt Date: 20140404
  Transmission Date: 20141212
  Serious: No
  Sender: FDA-Public Use
  Company Number: US-PFIZER INC-2013201949

PATIENT
  Age: 70 Year
  Sex: Female

DRUGS (7)
  1. ZITHROMAX [Suspect]
     Dosage: UNK
  2. MORPHINE [Suspect]
     Dosage: UNK
  3. OMEPRAZOLE [Suspect]
     Dosage: UNK
  4. CODEINE [Suspect]
     Dosage: UNK
  5. PLAVIX [Suspect]
     Dosage: 75 MG, UNK
  6. FOSAMAX [Suspect]
     Dosage: 70 MG, UNK
  7. CRESTOR [Suspect]
     Dosage: UNK

REACTIONS (1)
  - Drug hypersensitivity [Unknown]
